FAERS Safety Report 4525548-0 (Version None)
Quarter: 2004Q4

REPORT INFORMATION
  Report Type: 
  Country: None (occurrence: None)
  Receive Date: 20041116
  Receipt Date: 20040928
  Transmission Date: 20050328
  Serious: No
  Sender: FDA-Public Use
  Company Number: S04-USA-06426-01

PATIENT
  Age: 84 Year
  Sex: Female
  Weight: 80.7403 kg

DRUGS (9)
  1. NAMENDA [Suspect]
     Indication: DEMENTIA ALZHEIMER'S TYPE
     Dosage: 5 MG QD PO
     Route: 048
     Dates: start: 20040902, end: 20040908
  2. NAMENDA [Suspect]
     Indication: DEMENTIA ALZHEIMER'S TYPE
     Dosage: 5 MG BID PO
     Route: 048
     Dates: start: 20040909, end: 20040915
  3. NAMENDA [Suspect]
     Indication: DEMENTIA ALZHEIMER'S TYPE
     Dosage: 10 MG QAM PO
     Route: 048
     Dates: start: 20040916, end: 20040922
  4. NAMENDA [Suspect]
     Indication: DEMENTIA ALZHEIMER'S TYPE
     Dosage: 5 MG QHS PO
     Route: 048
     Dates: start: 20040916, end: 20040922
  5. DETROL LA [Concomitant]
  6. INSULIN [Concomitant]
  7. SYNTHROID [Concomitant]
  8. FUROSEMIDE [Concomitant]
  9. METOPROLOL [Concomitant]

REACTIONS (1)
  - TREMOR [None]
